FAERS Safety Report 6561651-1 (Version None)
Quarter: 2010Q1

REPORT INFORMATION
  Report Type: 
  Country: None (occurrence: None)
  Receive Date: 20100130
  Receipt Date: 20091022
  Transmission Date: 20100710
  Serious: No
  Sender: FDA-Public Use
  Company Number: US-ABBOTT-09P-163-0604803-00

PATIENT
  Sex: Female
  Weight: 98.064 kg

DRUGS (5)
  1. HUMIRA [Suspect]
     Indication: RHEUMATOID ARTHRITIS
     Dates: start: 20090920
  2. HUMIRA [Suspect]
     Indication: CROHN'S DISEASE
  3. MOBIC [Concomitant]
     Indication: ARTHRALGIA
  4. IBUPROFEN [Concomitant]
     Indication: ARTHRALGIA
     Dates: start: 20090901
  5. CELEBREX [Concomitant]
     Indication: ARTHRALGIA

REACTIONS (5)
  - CHEST PAIN [None]
  - DYSPNOEA [None]
  - INJECTION SITE HAEMATOMA [None]
  - INJECTION SITE NODULE [None]
  - INJECTION SITE PAIN [None]
